FAERS Safety Report 8558259 (Version 2)
Quarter: 2013Q2

REPORT INFORMATION
  Report Type: Spontaneous
  Country: US (occurrence: US)
  Receive Date: 20120511
  Receipt Date: 20130510
  Transmission Date: 20140414
  Serious: No
  Sender: FDA-Public Use
  Company Number: US-GLAXOSMITHKLINE-A0952250A

PATIENT
  Age: 45 Year
  Sex: Female

DRUGS (2)
  1. TYKERB [Suspect]
     Indication: PRODUCT USED FOR UNKNOWN INDICATION
     Dosage: 1250MG PER DAY
     Route: 065
     Dates: start: 20110819
  2. XELODA [Concomitant]
     Dosage: 1TAB TWICE PER DAY

REACTIONS (2)
  - Diarrhoea [Unknown]
  - Headache [Unknown]
